FAERS Safety Report 20874329 (Version 1)
Quarter: 2022Q2

REPORT INFORMATION
  Report Type: Spontaneous
  Country: US (occurrence: None)
  Receive Date: 20220525
  Receipt Date: 20220525
  Transmission Date: 20220721
  Serious: No
  Sender: FDA-Public Use
  Company Number: None

PATIENT
  Sex: Male

DRUGS (1)
  1. INLYTA [Suspect]
     Active Substance: AXITINIB
     Indication: Renal cancer
     Dosage: 5MG TWICE DAILY ORAL?
     Route: 048
     Dates: start: 20210319

REACTIONS (5)
  - Fall [None]
  - Gait inability [None]
  - Intervertebral disc protrusion [None]
  - Pain [None]
  - Arthropathy [None]
